FAERS Safety Report 5871571-3 (Version None)
Quarter: 2008Q3

REPORT INFORMATION
  Report Type: 
  Country: None (occurrence: None)
  Receive Date: 20080905
  Receipt Date: 20080611
  Transmission Date: 20090109
  Serious: No
  Sender: FDA-Public Use
  Company Number: A0728107A

PATIENT
  Age: 90 Year
  Sex: Female

DRUGS (9)
  1. REQUIP [Suspect]
     Indication: RESTLESS LEGS SYNDROME
     Dosage: 1MG AT NIGHT
     Route: 048
     Dates: start: 20080409, end: 20080501
  2. ROPINIROLE HYDROCHLORIDE [Suspect]
     Indication: RESTLESS LEGS SYNDROME
     Dosage: 1MG AT NIGHT
     Route: 048
     Dates: start: 20080501
  3. PROTONIX [Concomitant]
  4. COREG [Concomitant]
  5. ISOSORBIDE [Concomitant]
  6. NITROGLYCERIN [Concomitant]
     Route: 060
  7. CREAM [Concomitant]
     Route: 061
  8. HYDROCODONE BITARTRATE [Concomitant]
  9. WATER PILL [Concomitant]

REACTIONS (3)
  - DRUG INEFFECTIVE [None]
  - THERAPEUTIC RESPONSE DECREASED [None]
  - VISION BLURRED [None]
